FAERS Safety Report 16744440 (Version 1)
Quarter: 2019Q3

REPORT INFORMATION
  Report Type: Spontaneous
  Country: US (occurrence: US)
  Receive Date: 20190827
  Receipt Date: 20190827
  Transmission Date: 20191005
  Serious: Yes (Other)
  Sender: FDA-Public Use
  Company Number: US-ACCORD-152779

PATIENT
  Age: 65 Year
  Sex: Female
  Weight: 58.97 kg

DRUGS (1)
  1. AMITRIPTYLINE ACCORD [Suspect]
     Active Substance: AMITRIPTYLINE
     Indication: SLEEP DISORDER
     Dosage: STRENGTH: 25 MG?DOSE: 25 MG ONCE A DAY
     Route: 048
     Dates: start: 20190705

REACTIONS (2)
  - Off label use [Unknown]
  - Coeliac disease [Not Recovered/Not Resolved]
